FAERS Safety Report 9207690 (Version 1)
Quarter: 2013Q1

REPORT INFORMATION
  Report Type: Spontaneous
  Country: US (occurrence: None)
  Receive Date: 20120809
  Receipt Date: 20120809
  Transmission Date: 20140127
  Serious: Yes (Hospitalization)
  Sender: FDA-Public Use
  Company Number: 2011US006951

PATIENT
  Age: 62 Year
  Sex: Female

DRUGS (6)
  1. VESICARE [Suspect]
     Indication: HYPERTONIC BLADDER
     Route: 048
     Dates: start: 200810, end: 201012
  2. VESICARE [Suspect]
     Indication: URINARY INCONTINENCE
     Route: 048
     Dates: start: 200810, end: 201012
  3. ADVAIR (FLUTICASONE PROPIONATE, SALMETROL XINAFOATE) [Concomitant]
  4. ATENOLOL (ATENOLOL) [Concomitant]
  5. PAXIL (PAROEXTINE HYDROCHLORIDE) [Concomitant]
  6. ACHIPHEX (RABEPRAZOLE SODIUM) [Concomitant]

REACTIONS (2)
  - Intestinal obstruction [None]
  - Constipation [None]
